FAERS Safety Report 9494889 (Version 1)
Quarter: 2013Q3

REPORT INFORMATION
  Report Type: Spontaneous
  Country: US (occurrence: None)
  Receive Date: 20130830
  Receipt Date: 20130830
  Transmission Date: 20140515
  Serious: Yes (Other)
  Sender: FDA-Public Use
  Company Number: None

PATIENT
  Sex: Male

DRUGS (1)
  1. COPAXONE, 20 MG, TEVA [Suspect]
     Dates: start: 2012

REACTIONS (6)
  - Feeling abnormal [None]
  - Hypoaesthesia [None]
  - Dyspnoea [None]
  - Presyncope [None]
  - Vomiting [None]
  - Tremor [None]
